FAERS Safety Report 10770855 (Version 1)
Quarter: 2015Q1

REPORT INFORMATION
  Report Type: Spontaneous
  Country: GB (occurrence: GB)
  Receive Date: 20150206
  Receipt Date: 20150206
  Transmission Date: 20150721
  Serious: Yes (Hospitalization)
  Sender: FDA-Public Use
  Company Number: GB-ALLERGAN-1502083US

PATIENT
  Age: 90 Year
  Sex: Female

DRUGS (1)
  1. FLUOROMETHOLONE UNK [Suspect]
     Active Substance: FLUOROMETHOLONE
     Indication: HERPES ZOSTER
     Dosage: UNK UNK, TID
     Route: 047

REACTIONS (2)
  - Confusional state [Recovered/Resolved]
  - Hallucination [Recovered/Resolved]
